FAERS Safety Report 8998502 (Version 1)
Quarter: 2013Q1

REPORT INFORMATION
  Report Type: Report from Study
  Country: CN (occurrence: CN)
  Receive Date: 20130103
  Receipt Date: 20130103
  Transmission Date: 20140127
  Serious: Yes (Other)
  Sender: FDA-Public Use
  Company Number: CN-ROCHE-1172446

PATIENT
  Age: 59 Year
  Sex: Female
  Weight: 70 kg

DRUGS (2)
  1. TRASTUZUMAB [Suspect]
     Indication: BREAST CANCER
     Route: 041
     Dates: start: 201106
  2. XELODA [Suspect]
     Indication: BREAST CANCER
     Route: 048
     Dates: start: 201106, end: 201112

REACTIONS (1)
  - Metastases to lung [Not Recovered/Not Resolved]
